FAERS Safety Report 25056819 (Version 2)
Quarter: 2025Q1

REPORT INFORMATION
  Report Type: Spontaneous
  Country: US (occurrence: US)
  Receive Date: 20250310
  Receipt Date: 20250325
  Transmission Date: 20250408
  Serious: No
  Sender: AMGEN
  Company Number: US-AMGEN-USASP2025043747

PATIENT
  Age: 73 Year
  Sex: Male

DRUGS (4)
  1. REPATHA [Suspect]
     Active Substance: EVOLOCUMAB
     Indication: Blood cholesterol increased
     Dosage: 140 MILLIGRAM, Q2WK
     Route: 065
  2. METFORMIN [Concomitant]
     Active Substance: METFORMIN HYDROCHLORIDE
     Indication: Diabetes mellitus
  3. DUPIXENT [Concomitant]
     Active Substance: DUPILUMAB
     Indication: Asthma
  4. MUCINEX [Concomitant]
     Active Substance: GUAIFENESIN

REACTIONS (3)
  - Device difficult to use [Unknown]
  - Drug dose omission by device [Unknown]
  - Nasopharyngitis [Not Recovered/Not Resolved]

NARRATIVE: CASE EVENT DATE: 20250101
